FAERS Safety Report 8536705 (Version 2)
Quarter: 2015Q2

REPORT INFORMATION
  Report Type: Spontaneous
  Country: CA (occurrence: CA)
  Receive Date: 20120430
  Receipt Date: 20150506
  Transmission Date: 20150821
  Serious: Yes (Other)
  Sender: FDA-Public Use
  Company Number: CA-JNJFOC-20120409961

PATIENT
  Age: 53 Year
  Sex: Female
  Weight: 88.6 kg

DRUGS (3)
  1. EMTEC 30 [Concomitant]
     Route: 065
  2. REMICADE [Suspect]
     Active Substance: INFLIXIMAB
     Indication: COLITIS ULCERATIVE
     Route: 042
     Dates: start: 20120113
  3. IMURAN [Concomitant]
     Active Substance: AZATHIOPRINE
     Route: 048

REACTIONS (2)
  - Arrhythmia [Not Recovered/Not Resolved]
  - Palpitations [Not Recovered/Not Resolved]

NARRATIVE: CASE EVENT DATE: 201201
